FAERS Safety Report 7289592-5 (Version None)
Quarter: 2011Q1

REPORT INFORMATION
  Report Type: 
  Country: None (occurrence: None)
  Receive Date: 20110125
  Receipt Date: 20101231
  Transmission Date: 20110831
  Serious: Yes (Death)
  Sender: FDA-Public Use
  Company Number: AUR-APL-2011-00013

PATIENT
  Age: 48 Year
  Sex: Male

DRUGS (6)
  1. LAMOTRIGINE [Suspect]
     Dosage: ORAL
     Route: 048
  2. AMLODIPINE BESYLATE [Suspect]
     Dosage: ORAL
     Route: 048
  3. CITALOPRAM HYDROBROMIDE [Suspect]
     Dosage: ORAL
     Route: 048
  4. ETHANOL [Suspect]
     Dosage: ORAL
     Route: 048
  5. METHADONE [Suspect]
     Dosage: ORAL
     Route: 048
  6. LOTENSIN [Suspect]
     Dosage: ORAL
     Route: 048

REACTIONS (1)
  - COMPLETED SUICIDE [None]
